FAERS Safety Report 7771663-8 (Version None)
Quarter: 2011Q3

REPORT INFORMATION
  Report Type: 
  Country: None (occurrence: None)
  Receive Date: 20110922
  Receipt Date: 20110408
  Transmission Date: 20111222
  Serious: Yes (Hospitalization)
  Sender: FDA-Public Use
  Company Number: US-ASTRAZENECA-2011SE19996

PATIENT
  Age: 47 Year
  Sex: Male
  Weight: 71.7 kg

DRUGS (3)
  1. NEURONTIN [Concomitant]
     Indication: DEPRESSION
  2. SEROQUEL [Suspect]
     Indication: BIPOLAR I DISORDER
     Dosage: 400 MGS IN AM AND 25 MGS AT HS
     Route: 048
  3. PROZAC [Concomitant]
     Indication: DEPRESSION

REACTIONS (2)
  - PSYCHOTIC DISORDER [None]
  - DRUG DOSE OMISSION [None]
